FAERS Safety Report 4976760-8 (Version None)
Quarter: 2006Q2

REPORT INFORMATION
  Report Type: 
  Country: None (occurrence: None)
  Receive Date: 20060419
  Receipt Date: 20060417
  Transmission Date: 20061013
  Serious: Yes (Disabling, Other)
  Sender: FDA-Public Use
  Company Number: US-GLAXOSMITHKLINE-A0601947A

PATIENT
  Age: 84 Year
  Sex: Female

DRUGS (2)
  1. ADVAIR DISKUS 100/50 [Suspect]
     Indication: ASTHMA
     Dosage: 1PUFF TWICE PER DAY
     Route: 055
     Dates: start: 20060213
  2. ALBUTEROL [Concomitant]

REACTIONS (4)
  - GLAUCOMA [None]
  - MACULAR DEGENERATION [None]
  - OPTIC NERVE INJURY [None]
  - VISUAL DISTURBANCE [None]
